FAERS Safety Report 9714238 (Version 3)
Quarter: 2015Q3

REPORT INFORMATION
  Report Type: Spontaneous
  Country: US (occurrence: US)
  Receive Date: 20131126
  Receipt Date: 20150803
  Transmission Date: 20151125
  Serious: No
  Sender: FDA-Public Use
  Company Number: US-GILEAD-2008-0019086

PATIENT
  Age: 78 Year
  Sex: Female
  Weight: 48.53 kg

DRUGS (7)
  1. LETAIRIS [Suspect]
     Active Substance: AMBRISENTAN
     Indication: PULMONARY ARTERIAL HYPERTENSION
     Route: 048
     Dates: start: 20071113
  2. FUROSEMIDE. [Concomitant]
     Active Substance: FUROSEMIDE
  3. REVATIO [Concomitant]
     Active Substance: SILDENAFIL CITRATE
  4. METOPROLOL [Concomitant]
     Active Substance: METOPROLOL
  5. SPIRONOLACT [Concomitant]
  6. OMEPRAZOLE. [Concomitant]
     Active Substance: OMEPRAZOLE
  7. DIGOXIN. [Concomitant]
     Active Substance: DIGOXIN

REACTIONS (1)
  - Nasal congestion [Not Recovered/Not Resolved]

NARRATIVE: CASE EVENT DATE: 20080718
